FAERS Safety Report 11521033 (Version 1)
Quarter: 2015Q3

REPORT INFORMATION
  Report Type: Spontaneous
  Country: US (occurrence: US)
  Receive Date: 20150918
  Receipt Date: 20150918
  Transmission Date: 20151125
  Serious: No
  Sender: FDA-Public Use
  Company Number: US-ROCHE-730359

PATIENT
  Sex: Male

DRUGS (2)
  1. RIBAVIRIN. [Suspect]
     Active Substance: RIBAVIRIN
     Indication: HEPATITIS C
     Route: 065
     Dates: start: 20081107, end: 200907
  2. PEGASYS [Suspect]
     Active Substance: PEGINTERFERON ALFA-2A
     Indication: HEPATITIS C
     Route: 065
     Dates: start: 20081107, end: 200907

REACTIONS (6)
  - Memory impairment [Unknown]
  - Nausea [Unknown]
  - Anxiety [Unknown]
  - Paranoia [Unknown]
  - Blister [Unknown]
  - Dyspnoea [Unknown]
